FAERS Safety Report 23024548 (Version 1)
Quarter: 2023Q4

REPORT INFORMATION
  Report Type: Spontaneous
  Country: US (occurrence: US)
  Receive Date: 20231004
  Receipt Date: 20231004
  Transmission Date: 20240110
  Serious: No
  Sender: FDA-Public Use
  Company Number: US-SA-SAC20230928000140

PATIENT
  Sex: Male
  Weight: 18.59 kg

DRUGS (1)
  1. DUPIXENT [Suspect]
     Active Substance: DUPILUMAB
     Indication: Dermatitis atopic
     Dosage: 300 MG;EVERY 4 WEEKS
     Route: 058
     Dates: start: 20220726

REACTIONS (1)
  - Dermatitis atopic [Recovered/Resolved]
